FAERS Safety Report 4482150-7 (Version None)
Quarter: 2004Q4

REPORT INFORMATION
  Report Type: 
  Country: None (occurrence: None)
  Receive Date: 20041020
  Receipt Date: 20040930
  Transmission Date: 20050328
  Serious: Yes (Hospitalization)
  Sender: FDA-Public Use
  Company Number: US_991030023

PATIENT
  Age: 55 Year
  Sex: Male
  Weight: 102 kg

DRUGS (19)
  1. HUMATROPE [Suspect]
     Indication: GROWTH HORMONE DEFICIENCY
     Dosage: 0.22 MG/1 DAY
     Dates: start: 19980612
  2. VASOTEC [Concomitant]
  3. MULTI-VITAMIN [Concomitant]
  4. VITAMIN C [Concomitant]
  5. VITAMIN E [Concomitant]
  6. GLYBURIDE [Concomitant]
  7. HYDROCORTISONE [Concomitant]
  8. HALCION [Concomitant]
  9. AMBIEN [Concomitant]
  10. RESTORIL [Concomitant]
  11. TESTOSTERONE [Concomitant]
  12. LEVOXYL [Concomitant]
  13. ATENOLOL [Concomitant]
  14. ASPIRIN [Concomitant]
  15. ZOCOR [Concomitant]
  16. LIPITOR [Concomitant]
  17. ENDOCET [Concomitant]
  18. OXYCODONE [Concomitant]
  19. LISINOPRIL [Concomitant]

REACTIONS (12)
  - BLOOD CREATINE PHOSPHOKINASE INCREASED [None]
  - BLOOD PRESSURE DECREASED [None]
  - CORONARY ARTERY OCCLUSION [None]
  - DIZZINESS [None]
  - HYPERHIDROSIS [None]
  - LOBAR PNEUMONIA [None]
  - MYOCARDIAL ISCHAEMIA [None]
  - NAUSEA [None]
  - OSTEOARTHRITIS [None]
  - TOOTHACHE [None]
  - TROPONIN I INCREASED [None]
  - VASCULAR CALCIFICATION [None]
